FAERS Safety Report 8218464-4 (Version None)
Quarter: 2012Q1

REPORT INFORMATION
  Report Type: 
  Country: None (occurrence: None)
  Receive Date: 20120319
  Receipt Date: 20120315
  Transmission Date: 20120608
  Serious: Yes (Other)
  Sender: FDA-Public Use
  Company Number: US-BAYER-2012-025922

PATIENT
  Age: 56 Year
  Sex: Female

DRUGS (4)
  1. IBUPROFEN [Concomitant]
     Indication: PRODUCT USED FOR UNKNOWN INDICATION
     Dosage: 600 MG, UNK
  2. PROVIGIL [Concomitant]
     Indication: PRODUCT USED FOR UNKNOWN INDICATION
     Dosage: 200  MG BID
  3. BETASERON [Suspect]
     Dosage: 8 MIU, UNK
     Route: 058
  4. BETASERON [Suspect]
     Indication: MULTIPLE SCLEROSIS
     Dosage: UNK
     Dates: start: 20111114

REACTIONS (6)
  - STOMATITIS [None]
  - LIP BLISTER [None]
  - LIP SWELLING [None]
  - OROPHARYNGEAL BLISTERING [None]
  - TOOTHACHE [None]
  - ORAL PAIN [None]
